FAERS Safety Report 25959354 (Version 1)
Quarter: 2025Q4

REPORT INFORMATION
  Report Type: Spontaneous
  Country: EU (occurrence: EU)
  Receive Date: 20251025
  Receipt Date: 20251025
  Transmission Date: 20260117
  Serious: Yes (Hospitalization, Other)
  Sender: TEVA
  Company Number: None

PATIENT
  Age: 50 Year
  Sex: Male

DRUGS (1)
  1. PREDNISOLONE [Suspect]
     Active Substance: PREDNISOLONE
     Indication: Cerebral cyst
     Dosage: STRENGTH: UNKNOWN.; PREDNISOLONUM?DOSAGE: HIGH DOSE, NOT FURTHER SPECIFIED.
     Route: 065
     Dates: start: 20180329, end: 2018

REACTIONS (2)
  - Psychotic disorder [Recovered/Resolved]
  - Manic symptom [Recovered/Resolved]

NARRATIVE: CASE EVENT DATE: 20180402
